FAERS Safety Report 9092600 (Version 1)
Quarter: 2013Q1

REPORT INFORMATION
  Report Type: Spontaneous
  Country: US (occurrence: US)
  Receive Date: 20130131
  Receipt Date: 20130131
  Transmission Date: 20140127
  Serious: Yes (Other)
  Sender: FDA-Public Use
  Company Number: US-BRISTOL-MYERS SQUIBB COMPANY-17311911

PATIENT
  Age: 36 Year
  Sex: Female

DRUGS (3)
  1. ABILIFY [Suspect]
     Indication: SCHIZOAFFECTIVE DISORDER
     Dates: start: 200811
  2. SYNTHROID [Concomitant]
  3. YAZ [Concomitant]

REACTIONS (2)
  - Nervous system disorder [Unknown]
  - Gastroenteritis viral [Unknown]
